FAERS Safety Report 21135846 (Version 1)
Quarter: 2022Q3

REPORT INFORMATION
  Report Type: Other
  Country: US (occurrence: None)
  Receive Date: 20220727
  Receipt Date: 20220727
  Transmission Date: 20221027
  Serious: Yes (Hospitalization)
  Sender: FDA-Public Use
  Company Number: US-ROCHE-3145409

PATIENT
  Age: 29 Year
  Sex: Female

DRUGS (3)
  1. OBINUTUZUMAB [Suspect]
     Active Substance: OBINUTUZUMAB
     Indication: B-lymphocyte count decreased
     Route: 065
  2. VENETOCLAX [Suspect]
     Active Substance: VENETOCLAX
     Indication: B-lymphocyte count decreased
     Route: 065
  3. REGEN-COV [Suspect]
     Active Substance: CASIRIVIMAB\IMDEVIMAB
     Indication: Monoclonal antibody unconjugated therapy
     Route: 065

REACTIONS (2)
  - Post-acute COVID-19 syndrome [Recovering/Resolving]
  - Off label use [Unknown]
